FAERS Safety Report 9133992 (Version 2)
Quarter: 2013Q2

REPORT INFORMATION
  Report Type: Spontaneous
  Country: US (occurrence: US)
  Receive Date: 20130304
  Receipt Date: 20130419
  Transmission Date: 20140414
  Serious: No
  Sender: FDA-Public Use
  Company Number: US-009507513-1302USA013665

PATIENT
  Age: 85 Year
  Sex: Female

DRUGS (2)
  1. ZIOPTAN [Suspect]
     Indication: GLAUCOMA
     Dosage: 1 GTT, HS, 04
     Route: 047
     Dates: start: 20120918
  2. COSOPT [Suspect]
     Indication: GLAUCOMA
     Dosage: 1 GTT, HS, 04
     Route: 047
     Dates: start: 20120918

REACTIONS (5)
  - Drug dose omission [Unknown]
  - Incorrect dose administered [Unknown]
  - Product quality issue [Unknown]
  - Product quality issue [Unknown]
  - No adverse event [Unknown]
